FAERS Safety Report 20995062 (Version 4)
Quarter: 2022Q3

REPORT INFORMATION
  Report Type: Report from Study
  Country: US (occurrence: US)
  Receive Date: 20220622
  Receipt Date: 20220928
  Transmission Date: 20221027
  Serious: No
  Sender: FDA-Public Use
  Company Number: US-AGIOS-2206US03073

PATIENT

DRUGS (2)
  1. MITAPIVAT [Suspect]
     Active Substance: MITAPIVAT
     Indication: Pyruvate kinase deficiency anaemia
     Dosage: 5 MILLIGRAM, BID
     Route: 048
     Dates: start: 20220603
  2. MITAPIVAT [Suspect]
     Active Substance: MITAPIVAT
     Dosage: 20 MILLIGRAM, BID
     Route: 048
     Dates: start: 20220602

REACTIONS (6)
  - Haemoglobin decreased [Unknown]
  - Nausea [Unknown]
  - Fatigue [Unknown]
  - Paraesthesia [Unknown]
  - Product dose omission in error [Unknown]
  - Therapy non-responder [Unknown]
